FAERS Safety Report 4542397-8 (Version None)
Quarter: 2004Q4

REPORT INFORMATION
  Report Type: 
  Country: None (occurrence: None)
  Receive Date: 20041230
  Receipt Date: 20041224
  Transmission Date: 20050328
  Serious: Yes (Life-Threatening, Hospitalization)
  Sender: FDA-Public Use
  Company Number: JP-ABBOTT-04P-087-0284787-00

PATIENT
  Age: 57 Year
  Sex: Female

DRUGS (6)
  1. CLARITH [Suspect]
     Indication: NASOPHARYNGITIS
     Route: 048
     Dates: start: 20040503, end: 20040504
  2. CLARITH [Suspect]
  3. CEFCAPENE PIVOXIL HYDROCHLORIDE [Concomitant]
     Indication: NASOPHARYNGITIS
     Route: 048
     Dates: start: 20040501, end: 20040503
  4. CEFCAPENE PIVOXIL HYDROCHLORIDE [Concomitant]
  5. FLUVASTATIN SODIUM [Concomitant]
     Indication: HYPERTENSION
     Route: 048
     Dates: end: 20040504
  6. AMLODIPINE BESYLATE [Concomitant]
     Indication: HYPERTENSION
     Route: 048
     Dates: end: 20040504

REACTIONS (2)
  - HEPATITIS [None]
  - RENAL FAILURE [None]
